FAERS Safety Report 7090809-0 (Version None)
Quarter: 2010Q4

REPORT INFORMATION
  Report Type: 
  Country: None (occurrence: None)
  Receive Date: 20101012
  Receipt Date: 20100608
  Transmission Date: 20110411
  Serious: No
  Sender: FDA-Public Use
  Company Number: US_001179

PATIENT
  Sex: Female
  Weight: 12.7007 kg

DRUGS (2)
  1. KUVAN [Suspect]
     Indication: PHENYLKETONURIA
     Dosage: ORAL
     Route: 048
     Dates: start: 20100201, end: 20100101
  2. NUTRIENTS WITHOUT PHENYLALANINE [Concomitant]

REACTIONS (1)
  - DRUG INEFFECTIVE [None]
